FAERS Safety Report 6424741-X (Version None)
Quarter: 2009Q4

REPORT INFORMATION
  Report Type: 
  Country: None (occurrence: None)
  Receive Date: 20091030
  Receipt Date: 20091030
  Transmission Date: 20100525
  Serious: Yes (Hospitalization)
  Sender: FDA-Public Use
  Company Number: None

PATIENT
  Age: 75 Year
  Sex: Male

DRUGS (1)
  1. NAPROXEN [Suspect]
     Indication: PAIN
     Dosage: 200 MG OTHER PO
     Route: 048
     Dates: start: 20090823, end: 20090903

REACTIONS (2)
  - HYPERKALAEMIA [None]
  - HYPOPHAGIA [None]
